FAERS Safety Report 5828995-X (Version None)
Quarter: 2008Q3

REPORT INFORMATION
  Report Type: 
  Country: None (occurrence: None)
  Receive Date: 20080731
  Receipt Date: 20080722
  Transmission Date: 20090109
  Serious: Yes (Other)
  Sender: FDA-Public Use
  Company Number: PHHY2008JP15673

PATIENT
  Age: 83 Year

DRUGS (1)
  1. LOPRESSOR [Suspect]
     Route: 048

REACTIONS (2)
  - RASH GENERALISED [None]
  - RASH VESICULAR [None]
